FAERS Safety Report 4949357-3 (Version None)
Quarter: 2006Q1

REPORT INFORMATION
  Report Type: 
  Country: None (occurrence: None)
  Receive Date: 20060315
  Receipt Date: 20060224
  Transmission Date: 20060701
  Serious: Yes (Other)
  Sender: FDA-Public Use
  Company Number: US200602005232

PATIENT
  Age: 17 Year
  Sex: Female

DRUGS (1)
  1. ZYPREXA [Suspect]
     Indication: BIPOLAR I DISORDER
     Dosage: 25 MG, ORAL
     Route: 048

REACTIONS (3)
  - BLINDNESS TRANSIENT [None]
  - EYE IRRITATION [None]
  - PRESCRIBED OVERDOSE [None]
